FAERS Safety Report 4855932-7 (Version None)
Quarter: 2005Q4

REPORT INFORMATION
  Report Type: 
  Country: None (occurrence: None)
  Receive Date: 20051216
  Receipt Date: 20051206
  Transmission Date: 20060501
  Serious: Yes (Hospitalization)
  Sender: FDA-Public Use
  Company Number: FR-GLAXOSMITHKLINE-B0403685A

PATIENT
  Age: 66 Year
  Sex: Male

DRUGS (2)
  1. AUGMENTIN [Suspect]
     Indication: ANIMAL BITE
     Route: 048
     Dates: start: 20050829, end: 20050830
  2. FUCIDINE CAP [Suspect]
     Indication: ANIMAL BITE
     Route: 061
     Dates: start: 20050829, end: 20050830

REACTIONS (12)
  - CHEILITIS [None]
  - CONJUNCTIVITIS [None]
  - ERYTHEMA [None]
  - EXFOLIATIVE RASH [None]
  - HYPERTHERMIA [None]
  - INFLAMMATION [None]
  - LYMPHADENOPATHY [None]
  - PRURITUS [None]
  - RASH MACULO-PAPULAR [None]
  - RASH PUSTULAR [None]
  - RASH VESICULAR [None]
  - TOXIC SKIN ERUPTION [None]
